FAERS Safety Report 5317671-8 (Version None)
Quarter: 2007Q2

REPORT INFORMATION
  Report Type: 
  Country: None (occurrence: None)
  Receive Date: 20070507
  Receipt Date: 20070424
  Transmission Date: 20071010
  Serious: Yes (Hospitalization, Other)
  Sender: FDA-Public Use
  Company Number: PHFR2007GB01290

PATIENT
  Age: 22 Year
  Sex: Female

DRUGS (3)
  1. CLOZARIL [Suspect]
     Indication: SCHIZOPHRENIA
     Dosage: 300MG DAILY
     Route: 048
     Dates: start: 20060717, end: 20070402
  2. CITALOPRAM HYDROBROMIDE [Concomitant]
     Indication: DEPRESSION
     Route: 048
     Dates: start: 20061101
  3. LORATADINE [Concomitant]
     Indication: SEASONAL ALLERGY
     Dosage: 10MG DAILY
     Route: 048

REACTIONS (4)
  - CHEST PAIN [None]
  - ELECTROCARDIOGRAM QT CORRECTED INTERVAL PROLONGED [None]
  - LETHARGY [None]
  - TACHYCARDIA [None]
